FAERS Safety Report 6072732-3 (Version None)
Quarter: 2009Q1

REPORT INFORMATION
  Report Type: 
  Country: None (occurrence: None)
  Receive Date: 20090210
  Receipt Date: 20090209
  Transmission Date: 20090719
  Serious: Yes (Hospitalization)
  Sender: FDA-Public Use
  Company Number: US-B.I. PHARMACEUTICALS,INC./RIDGEFIELD-2009-BP-00914BP

PATIENT
  Age: 78 Year
  Sex: Male

DRUGS (6)
  1. SPIRIVA [Suspect]
     Indication: CHRONIC OBSTRUCTIVE PULMONARY DISEASE
     Dosage: 18MCG
     Route: 055
     Dates: start: 20050101
  2. SPIRIVA [Suspect]
     Indication: EMPHYSEMA
  3. FORADIL [Concomitant]
  4. ASMANEX TWISTHALER [Concomitant]
  5. MUCINEX [Concomitant]
  6. OXYGEN [Concomitant]

REACTIONS (2)
  - DYSPNOEA [None]
  - PULMONARY HYPERTENSION [None]
